FAERS Safety Report 6448281-7 (Version None)
Quarter: 2009Q4

REPORT INFORMATION
  Report Type: 
  Country: None (occurrence: None)
  Receive Date: 20091120
  Receipt Date: 20091118
  Transmission Date: 20100525
  Serious: Yes (Death)
  Sender: FDA-Public Use
  Company Number: JP-B.I. PHARMACEUTICALS,INC./RIDGEFIELD-2009-BP-12666NB

PATIENT
  Age: 88 Year
  Sex: Female

DRUGS (6)
  1. MOBIC [Suspect]
     Indication: BACK PAIN
     Dosage: 10 MG
     Route: 048
     Dates: start: 20090805, end: 20091008
  2. ARTIST [Suspect]
     Indication: VENTRICULAR EXTRASYSTOLES
     Dosage: 5 MG
     Route: 048
     Dates: start: 20090805, end: 20091008
  3. ASPENON [Suspect]
     Indication: VENTRICULAR EXTRASYSTOLES
     Dosage: 20 MG
     Route: 048
     Dates: start: 20090805, end: 20091008
  4. MUCOSTA [Concomitant]
     Indication: GASTRITIS
     Dosage: 100 MG
     Route: 048
     Dates: start: 20090815, end: 20091008
  5. BONALON [Concomitant]
     Indication: OSTEOPOROSIS
     Dosage: 35MG/1TIME/1 WEEK
     Route: 048
     Dates: start: 20090816, end: 20091008
  6. MAGMITT [Concomitant]
     Indication: CONSTIPATION
     Dosage: 750 MG
     Route: 048
     Dates: start: 20090815, end: 20091008

REACTIONS (3)
  - AGRANULOCYTOSIS [None]
  - PNEUMONIA [None]
  - SEPSIS [None]
